FAERS Safety Report 10433662 (Version 2)
Quarter: 2014Q4

REPORT INFORMATION
  Report Type: Spontaneous
  Country: CH (occurrence: CH)
  Receive Date: 20140905
  Receipt Date: 20141124
  Transmission Date: 20150528
  Serious: Yes (Hospitalization, Other)
  Sender: FDA-Public Use
  Company Number: PHHY2014CH110824

PATIENT
  Age: 33 Year
  Sex: Male

DRUGS (3)
  1. GILENYA [Suspect]
     Active Substance: FINGOLIMOD HYDROCHLORIDE
     Dosage: 0.5 MG, QD
     Route: 048
     Dates: start: 201312
  2. GILENYA [Suspect]
     Active Substance: FINGOLIMOD HYDROCHLORIDE
     Indication: MULTIPLE SCLEROSIS
     Dosage: 0.5 MG, QD
     Route: 048
     Dates: start: 20130913, end: 20131114
  3. ESOMEP HP [Concomitant]
     Indication: PRODUCT USED FOR UNKNOWN INDICATION
     Route: 065

REACTIONS (12)
  - Cholelithiasis [Unknown]
  - Leukopenia [Unknown]
  - Alanine aminotransferase increased [Unknown]
  - Dyspepsia [Not Recovered/Not Resolved]
  - Nausea [Not Recovered/Not Resolved]
  - Transaminases increased [Unknown]
  - Enterovirus infection [Unknown]
  - Cough [Unknown]
  - Gamma-glutamyltransferase increased [Unknown]
  - Abdominal pain upper [Unknown]
  - Decreased appetite [Not Recovered/Not Resolved]
  - Lymphopenia [Unknown]
